FAERS Safety Report 9891231 (Version 1)
Quarter: 2014Q1

REPORT INFORMATION
  Report Type: Report from Study
  Country: JP (occurrence: JP)
  Receive Date: 20140212
  Receipt Date: 20140212
  Transmission Date: 20141002
  Serious: Yes (Hospitalization)
  Sender: FDA-Public Use
  Company Number: JP-SA-2014SA014910

PATIENT
  Age: 9 Year
  Sex: Male
  Weight: 47.7 kg

DRUGS (13)
  1. THYMOGLOBULINE [Suspect]
     Indication: BONE MARROW CONDITIONING REGIMEN
     Route: 042
     Dates: start: 20130629, end: 20130701
  2. THYMOGLOBULINE [Suspect]
     Indication: BONE MARROW CONDITIONING REGIMEN
     Route: 042
     Dates: start: 20130628, end: 20130628
  3. PROGRAF [Suspect]
     Indication: PROPHYLAXIS AGAINST GRAFT VERSUS HOST DISEASE
     Dosage: INJECTION
     Route: 065
     Dates: start: 20130703, end: 20130806
  4. PROGRAF [Suspect]
     Indication: PROPHYLAXIS AGAINST GRAFT VERSUS HOST DISEASE
     Dosage: GRANULES
     Route: 065
     Dates: start: 20130806, end: 20131007
  5. ORGARAN [Concomitant]
     Indication: PROPHYLAXIS
     Dates: start: 20130627, end: 20130801
  6. GRAN [Concomitant]
     Indication: COLONY STIMULATING FACTOR THERAPY
     Dates: start: 20130709, end: 20130729
  7. FLUCONAZOLE [Concomitant]
     Indication: PROPHYLAXIS
     Dates: start: 20130620
  8. URSODEOXYCHOLIC ACID [Concomitant]
     Indication: PROPHYLAXIS
     Dates: start: 20130627, end: 20130821
  9. ZOVIRAX [Concomitant]
     Indication: PROPHYLAXIS
     Dates: start: 20130704
  10. FLUCONAZOLE [Concomitant]
     Indication: PROPHYLAXIS
     Route: 042
     Dates: start: 20130709, end: 20130730
  11. ACICLOVIR [Concomitant]
     Indication: PROPHYLAXIS
     Dates: start: 20130708, end: 20130730
  12. CEFPIROME [Concomitant]
     Indication: FEBRILE NEUTROPENIA
     Dates: start: 20130711, end: 20130719
  13. BAKTAR [Concomitant]
     Indication: PROPHYLAXIS

REACTIONS (2)
  - Cytomegalovirus viraemia [Recovering/Resolving]
  - Urethritis [Recovering/Resolving]
